FAERS Safety Report 4984868-6 (Version None)
Quarter: 2006Q2

REPORT INFORMATION
  Report Type: 
  Country: None (occurrence: None)
  Receive Date: 20060427
  Receipt Date: 20030828
  Transmission Date: 20061013
  Serious: Yes (Disabling)
  Sender: FDA-Public Use
  Company Number: NO-ROCHE-345539

PATIENT
  Age: 19 Year
  Sex: Female

DRUGS (1)
  1. ROACCUTAN [Suspect]
     Route: 048
     Dates: start: 19860915, end: 19861215

REACTIONS (17)
  - CEREBROVASCULAR DISORDER [None]
  - DEPRESSION [None]
  - DISTURBANCE IN ATTENTION [None]
  - ENCEPHALOPATHY [None]
  - HEADACHE [None]
  - HYPERSOMNIA [None]
  - HYPOAESTHESIA [None]
  - IRRITABILITY [None]
  - LIP DRY [None]
  - MALAISE [None]
  - MEMORY IMPAIRMENT [None]
  - MUCOSAL DRYNESS [None]
  - NECK PAIN [None]
  - PARAESTHESIA [None]
  - SHOULDER PAIN [None]
  - TINNITUS [None]
  - VISUAL DISTURBANCE [None]
